FAERS Safety Report 13550739 (Version 3)
Quarter: 2018Q3

REPORT INFORMATION
  Report Type: Report from Study
  Country: US (occurrence: US)
  Receive Date: 20170516
  Receipt Date: 20180703
  Transmission Date: 20181010
  Serious: Yes (Other)
  Sender: FDA-Public Use
  Company Number: US-UCBSA-2017003935

PATIENT
  Age: 73 Year
  Sex: Female
  Weight: 73 kg

DRUGS (15)
  1. VITAMINS NOS [Concomitant]
     Active Substance: VITAMINS
     Indication: PRODUCT USED FOR UNKNOWN INDICATION
     Dosage: UNKNOWN DOSE
  2. ROTIGOTINE [Interacting]
     Active Substance: ROTIGOTINE
     Dosage: 2 MG, ONCE DAILY (QD)
     Route: 062
     Dates: start: 201801
  3. LISINOPRIL. [Concomitant]
     Active Substance: LISINOPRIL
     Indication: PRODUCT USED FOR UNKNOWN INDICATION
     Dosage: DAILY 10 MG
     Route: 048
  4. ROTIGOTINE [Suspect]
     Active Substance: ROTIGOTINE
     Indication: RESTLESS LEGS SYNDROME
     Dosage: 2 MG, ONCE DAILY (QD)
     Route: 062
     Dates: start: 20170101
  5. ROPINIROLE. [Concomitant]
     Active Substance: ROPINIROLE
     Indication: RESTLESS LEGS SYNDROME
     Dosage: 1 MG, AS NEEDED (PRN)
  6. FLUOXETINE [Concomitant]
     Active Substance: FLUOXETINE HYDROCHLORIDE
     Dosage: DAILY 40 MGUNK
     Route: 048
  7. PAROXETINE. [Concomitant]
     Active Substance: PAROXETINE
     Indication: PRODUCT USED FOR UNKNOWN INDICATION
     Dosage: STRENGTH 20 MG
  8. ROTIGOTINE [Interacting]
     Active Substance: ROTIGOTINE
     Indication: MYOCLONUS
     Dosage: 2 MG, ONCE DAILY (QD)
  9. ROPINIROLE. [Concomitant]
     Active Substance: ROPINIROLE
     Dosage: DAILY 2 MG
     Route: 048
     Dates: start: 201803
  10. BABY ASPIRIN [Concomitant]
     Active Substance: ASPIRIN
     Indication: PRODUCT USED FOR UNKNOWN INDICATION
     Dosage: STRENGTH 81 MG
  11. ROTIGOTINE [Interacting]
     Active Substance: ROTIGOTINE
     Indication: PARKINSON^S DISEASE
     Dosage: 200 MG, ONCE DAILY (QD)
     Route: 062
     Dates: start: 20180101
  12. HYDROCHLOROTHIAZIDE. [Concomitant]
     Active Substance: HYDROCHLOROTHIAZIDE
     Indication: PRODUCT USED FOR UNKNOWN INDICATION
     Dosage: STRENGTH 25 MG
  13. HYDROCHLOROTHIAZIDE. [Concomitant]
     Active Substance: HYDROCHLOROTHIAZIDE
     Dosage: DAILY 25 MGUNK
     Route: 048
  14. BABY ASPIRIN [Concomitant]
     Active Substance: ASPIRIN
     Dosage: DAILY 81 MG
     Route: 048
  15. FLUOXETINE [Concomitant]
     Active Substance: FLUOXETINE HYDROCHLORIDE
     Indication: DEPRESSION
     Dosage: STRENGTH 40 MG

REACTIONS (12)
  - Drug ineffective [Unknown]
  - Drug interaction [Unknown]
  - Headache [Recovered/Resolved]
  - Adverse drug reaction [Not Recovered/Not Resolved]
  - Intentional product misuse [Unknown]
  - Product adhesion issue [Unknown]
  - Drug hypersensitivity [Not Recovered/Not Resolved]
  - Hypoaesthesia [Recovered/Resolved]
  - Application site erythema [Not Recovered/Not Resolved]
  - Application site rash [Not Recovered/Not Resolved]
  - Application site pruritus [Not Recovered/Not Resolved]
  - Sleep talking [Unknown]

NARRATIVE: CASE EVENT DATE: 2017
